FAERS Safety Report 9305302 (Version 1)
Quarter: 2013Q2

REPORT INFORMATION
  Report Type: Spontaneous
  Country: DE (occurrence: DE)
  Receive Date: 20130523
  Receipt Date: 20130523
  Transmission Date: 20140414
  Serious: Yes (Other)
  Sender: FDA-Public Use
  Company Number: DE-ASTELLAS-2013US005258

PATIENT
  Age: 65 Year
  Sex: Male

DRUGS (2)
  1. TARCEVA [Suspect]
     Dosage: UNK
     Route: 065
  2. TARCEVA [Suspect]
     Dosage: UNK
     Route: 065

REACTIONS (2)
  - Femoral neck fracture [Not Recovered/Not Resolved]
  - Fracture delayed union [Not Recovered/Not Resolved]
